FAERS Safety Report 16924440 (Version 1)
Quarter: 2019Q4

REPORT INFORMATION
  Report Type: Spontaneous
  Country: EE (occurrence: EE)
  Receive Date: 20191016
  Receipt Date: 20191016
  Transmission Date: 20200122
  Serious: Yes (Other)
  Sender: FDA-Public Use
  Company Number: EE-BAYER-2019-182751

PATIENT
  Age: 59 Year
  Sex: Male

DRUGS (1)
  1. XOFIGO [Suspect]
     Active Substance: RADIUM RA-223 DICHLORIDE
     Dosage: UNK
     Route: 042
     Dates: start: 20190418, end: 20190418

REACTIONS (5)
  - Hemiparaesthesia [None]
  - Trigeminal neuralgia [None]
  - Deafness unilateral [None]
  - Metastases to central nervous system [None]
  - Periorbital pain [None]
